FAERS Safety Report 11512620 (Version 12)
Quarter: 2018Q4

REPORT INFORMATION
  Report Type: Report from Study
  Country: DE (occurrence: DE)
  Receive Date: 20150916
  Receipt Date: 20181123
  Transmission Date: 20190204
  Serious: Yes (Hospitalization, Other)
  Sender: FDA-Public Use
  Company Number: DE-ROCHE-1587446

PATIENT
  Age: 77 Year
  Sex: Female
  Weight: 80 kg

DRUGS (17)
  1. MARCUMAR [Concomitant]
     Active Substance: PHENPROCOUMON
     Route: 065
  2. METHOTREXATE. [Concomitant]
     Active Substance: METHOTREXATE
     Indication: RHEUMATOID ARTHRITIS
     Dosage: ON TUESDAYS
     Route: 058
     Dates: start: 2002
  3. METHOTREXATE. [Concomitant]
     Active Substance: METHOTREXATE
     Route: 058
     Dates: start: 2002
  4. PANTOPRAZOL [Concomitant]
     Active Substance: PANTOPRAZOLE SODIUM
     Route: 065
  5. L-THYROXIN [Concomitant]
     Active Substance: LEVOTHYROXINE SODIUM
     Route: 065
  6. KALINOR (POTASSIUM BICARBONATE/POTASSIUM CITRATE) [Concomitant]
     Active Substance: POTASSIUM BICARBONATE\POTASSIUM CITRATE
  7. ROACTEMRA [Suspect]
     Active Substance: TOCILIZUMAB
     Indication: RHEUMATOID ARTHRITIS
     Dosage: ON THURSDAYS
     Route: 058
     Dates: start: 20150513, end: 20180927
  8. TORASEMID [Concomitant]
     Active Substance: TORSEMIDE
     Indication: HYPERTENSION
     Route: 065
  9. MARCUMAR [Concomitant]
     Active Substance: PHENPROCOUMON
     Route: 065
  10. VALSACOR [Concomitant]
     Active Substance: VALSARTAN
     Route: 065
  11. BISOPROLOL [Concomitant]
     Active Substance: BISOPROLOL
     Route: 065
  12. CORTISONE [Concomitant]
     Active Substance: CORTISONE\HYDROCORTISONE
     Dosage: AS REQUIRED
     Route: 065
  13. NOVAMINSULFON [Concomitant]
     Active Substance: METAMIZOLE
     Dosage: AS REQUIRED
     Route: 065
  14. TORASEMID [Concomitant]
     Active Substance: TORSEMIDE
     Route: 065
  15. MARCUMAR [Concomitant]
     Active Substance: PHENPROCOUMON
     Route: 065
  16. L-THYROXIN [Concomitant]
     Active Substance: LEVOTHYROXINE SODIUM
     Dosage: TREATMENT AFTER THYROID SURGERY
     Route: 065
  17. VIGANTOLETTEN [Concomitant]
     Active Substance: CHOLECALCIFEROL

REACTIONS (20)
  - Cardiac valve disease [Unknown]
  - Arthralgia [Not Recovered/Not Resolved]
  - Nausea [Recovered/Resolved]
  - Nasopharyngitis [Not Recovered/Not Resolved]
  - Liver function test increased [Not Recovered/Not Resolved]
  - Blood uric acid increased [Not Recovered/Not Resolved]
  - Intervertebral disc protrusion [Not Recovered/Not Resolved]
  - Urinary tract infection [Recovered/Resolved]
  - Dizziness [Recovered/Resolved]
  - Pneumonia [Recovering/Resolving]
  - Musculoskeletal stiffness [Not Recovered/Not Resolved]
  - Paraesthesia [Not Recovered/Not Resolved]
  - Weight increased [Not Recovered/Not Resolved]
  - Injection site swelling [Recovered/Resolved]
  - Musculoskeletal pain [Not Recovered/Not Resolved]
  - Dyspnoea [Not Recovered/Not Resolved]
  - Rheumatoid arthritis [Recovering/Resolving]
  - Back pain [Not Recovered/Not Resolved]
  - General physical health deterioration [Not Recovered/Not Resolved]
  - Glossodynia [Recovered/Resolved]

NARRATIVE: CASE EVENT DATE: 20150513
